FAERS Safety Report 16188662 (Version 1)
Quarter: 2019Q2

REPORT INFORMATION
  Report Type: Report from Study
  Country: BE (occurrence: BE)
  Receive Date: 20190412
  Receipt Date: 20190412
  Transmission Date: 20190711
  Serious: No
  Sender: FDA-Public Use
  Company Number: BE-ROCHE-2300802

PATIENT
  Sex: Male

DRUGS (1)
  1. OCREVUS [Suspect]
     Active Substance: OCRELIZUMAB
     Indication: MULTIPLE SCLEROSIS
     Route: 065

REACTIONS (6)
  - Pain in extremity [Not Recovered/Not Resolved]
  - Gingivitis [Not Recovered/Not Resolved]
  - Psoriasis [Unknown]
  - Hypersensitivity [Recovered/Resolved]
  - Periodontitis [Not Recovered/Not Resolved]
  - Tooth loss [Unknown]
